FAERS Safety Report 4355557-6 (Version None)
Quarter: 2004Q2

REPORT INFORMATION
  Report Type: 
  Country: None (occurrence: None)
  Receive Date: 20040505
  Receipt Date: 20040420
  Transmission Date: 20050107
  Serious: No
  Sender: FDA-Public Use
  Company Number: 04P-056-0258114-00

PATIENT
  Sex: 0

DRUGS (1)
  1. MICROPAKINE GRANULE (DEPAKENE) (VALPROIC ACID) (VALPROIC ACID) [Suspect]
     Dosage: PER ORAL
     Route: 048

REACTIONS (2)
  - DRUG INEFFECTIVE [None]
  - EPILEPSY [None]
